FAERS Safety Report 6763865-4 (Version None)
Quarter: 2010Q2

REPORT INFORMATION
  Report Type: 
  Country: None (occurrence: None)
  Receive Date: 20100610
  Receipt Date: 20100528
  Transmission Date: 20101027
  Serious: Yes (Other)
  Sender: FDA-Public Use
  Company Number: PHHY2010NL25576

PATIENT
  Sex: Female
  Weight: 59 kg

DRUGS (10)
  1. RASILEZ [Suspect]
     Indication: HYPERTENSION
     Dosage: 150 MG, UNK
     Dates: start: 20100201
  2. RASILEZ [Suspect]
     Dosage: 300 MG
     Route: 048
     Dates: start: 20100407, end: 20100414
  3. PANTOZOL [Concomitant]
  4. LANOXIN [Concomitant]
  5. HYDROCHLOROTHIAZIDE [Concomitant]
  6. MONO-CEDOCARD [Concomitant]
     Indication: CARDIAC FAILURE
  7. MONO-CEDOCARD [Concomitant]
     Indication: CHEST PAIN
  8. ENALAPRIL MALEATE [Concomitant]
  9. THYRAX [Concomitant]
  10. ATENOLOL [Concomitant]

REACTIONS (6)
  - BLOOD PRESSURE INADEQUATELY CONTROLLED [None]
  - MALAISE [None]
  - PARAESTHESIA [None]
  - PRURITUS [None]
  - RASH [None]
  - RASH PAPULAR [None]
